FAERS Safety Report 16329961 (Version 4)
Quarter: 2020Q4

REPORT INFORMATION
  Report Type: Spontaneous
  Country: US (occurrence: US)
  Receive Date: 20190520
  Receipt Date: 20201216
  Transmission Date: 20210113
  Serious: Yes (Death, Other)
  Sender: FDA-Public Use
  Company Number: US-GLAXOSMITHKLINE-US2019GSK087679

PATIENT
  Age: 52 Year
  Sex: Female

DRUGS (11)
  1. PREVACID 24 HR [Suspect]
     Active Substance: LANSOPRAZOLE
     Indication: BARRETT^S OESOPHAGUS
     Dosage: 40 MG, QD
     Route: 065
     Dates: start: 1998
  2. PREVACID [Suspect]
     Active Substance: LANSOPRAZOLE
     Indication: PRODUCT USED FOR UNKNOWN INDICATION
     Dosage: UNK UNK
     Route: 065
  3. PREVACID [Suspect]
     Active Substance: LANSOPRAZOLE
     Dosage: UNK
     Route: 065
  4. PANTOPRAZOLE                       /01263204/ [Suspect]
     Active Substance: PANTOPRAZOLE SODIUM
     Indication: BARRETT^S OESOPHAGUS
     Dosage: 40 MG, QD
     Route: 065
     Dates: start: 20150905, end: 20160921
  5. PRILOSEC (OMEPRAZOLE) [Suspect]
     Active Substance: OMEPRAZOLE MAGNESIUM
     Indication: PRODUCT USED FOR UNKNOWN INDICATION
     Dosage: 20 MG QD
     Route: 065
  6. PRILOSEC (OMEPRAZOLE) [Suspect]
     Active Substance: OMEPRAZOLE MAGNESIUM
     Dosage: 20 MG BID
     Route: 065
     Dates: start: 20150904, end: 20161104
  7. PREVACID [Suspect]
     Active Substance: LANSOPRAZOLE
     Dosage: UNK
     Route: 065
  8. OMEPRAZOLE                         /00661202/ [Suspect]
     Active Substance: OMEPRAZOLE SODIUM
     Dosage: 40 MG, QD
     Route: 048
     Dates: start: 20151228
  9. PRILOSEC OTC [Suspect]
     Active Substance: OMEPRAZOLE MAGNESIUM
     Indication: BARRETT^S OESOPHAGUS
     Dosage: 40 MG, QD
     Route: 065
     Dates: start: 2000
  10. OMEPRAZOLE                         /00661202/ [Suspect]
     Active Substance: OMEPRAZOLE SODIUM
     Indication: BARRETT^S OESOPHAGUS
     Dosage: 20 MG, BID
     Route: 065
     Dates: start: 20120507, end: 20151228
  11. OMEPRAZOLE                         /00661202/ [Suspect]
     Active Substance: OMEPRAZOLE SODIUM
     Dosage: 20 MG, BID
     Route: 048
     Dates: start: 20120507, end: 20161104

REACTIONS (17)
  - Acute kidney injury [Unknown]
  - Nephropathy [Unknown]
  - Skin ulcer [Fatal]
  - Chronic kidney disease [Unknown]
  - Renal transplant [Unknown]
  - Nephrogenic anaemia [Unknown]
  - End stage renal disease [Unknown]
  - Pulmonary embolism [Unknown]
  - Haemodialysis [Unknown]
  - Chronic kidney disease-mineral and bone disorder [Unknown]
  - Cardiac arrest [Fatal]
  - Dialysis [Unknown]
  - Hypertensive nephropathy [Unknown]
  - Diabetic nephropathy [Unknown]
  - Proteinuria [Unknown]
  - Renal failure [Unknown]
  - Death [Fatal]

NARRATIVE: CASE EVENT DATE: 20161121
